FAERS Safety Report 14371840 (Version 1)
Quarter: 2018Q1

REPORT INFORMATION
  Report Type: Spontaneous
  Country: US (occurrence: US)
  Receive Date: 20180109
  Receipt Date: 20180109
  Transmission Date: 20180509
  Serious: No
  Sender: FDA-Public Use
  Company Number: None

PATIENT
  Age: 71 Year
  Sex: Female

DRUGS (15)
  1. MELOXICAM. [Concomitant]
     Active Substance: MELOXICAM
  2. VITAMIN C [Concomitant]
     Active Substance: ASCORBIC ACID
  3. LYRICA [Concomitant]
     Active Substance: PREGABALIN
  4. TUMERIC [Concomitant]
     Active Substance: HERBALS\TURMERIC
  5. ULTRAM [Concomitant]
     Active Substance: TRAMADOL HYDROCHLORIDE
  6. CAPECITABINE. [Suspect]
     Active Substance: CAPECITABINE
     Indication: COLON CANCER
     Dosage: OTHER FREQUENCY:BID X 7 D, 7 OFF.;?
     Route: 048
     Dates: start: 20171126, end: 20180109
  7. CYMBALTA [Concomitant]
     Active Substance: DULOXETINE HYDROCHLORIDE
  8. GLUCOSAMINE AND CHONDROITIN [Concomitant]
     Active Substance: CHONDROITIN SULFATE (BOVINE)\GLUCOSAMINE HYDROCHLORIDE
  9. ESTRADIOL. [Concomitant]
     Active Substance: ESTRADIOL
  10. PRAVASTATIN. [Concomitant]
     Active Substance: PRAVASTATIN
  11. TRAZODONE [Concomitant]
     Active Substance: TRAZODONE HYDROCHLORIDE
  12. OMEPRAZOLE. [Concomitant]
     Active Substance: OMEPRAZOLE
  13. ZANTAC [Concomitant]
     Active Substance: RANITIDINE HYDROCHLORIDE
  14. VITAMIN B12 [Concomitant]
     Active Substance: CYANOCOBALAMIN
  15. LEVOTHYROXINE. [Concomitant]
     Active Substance: LEVOTHYROXINE

REACTIONS (4)
  - Oral pain [None]
  - Diarrhoea [None]
  - Burning sensation [None]
  - Oral discomfort [None]

NARRATIVE: CASE EVENT DATE: 20180109
